FAERS Safety Report 4889180-1 (Version None)
Quarter: 2006Q1

REPORT INFORMATION
  Report Type: 
  Country: None (occurrence: None)
  Receive Date: 20060124
  Receipt Date: 20060113
  Transmission Date: 20060701
  Serious: Yes (Hospitalization)
  Sender: FDA-Public Use
  Company Number: FR-JNJFOC-20060100980

PATIENT
  Age: 43 Year
  Sex: Male
  Weight: 56 kg

DRUGS (8)
  1. REMICADE [Suspect]
     Indication: SPONDYLITIS
     Route: 042
  2. TOPALGIC [Concomitant]
     Route: 048
  3. SPECIAFOLDINE [Concomitant]
     Route: 048
     Dates: start: 20040101
  4. QUESTRAN [Concomitant]
     Route: 048
  5. METHOTREXATE [Concomitant]
     Indication: SPONDYLITIS
     Route: 058
     Dates: start: 19970101
  6. CACIT D3 [Concomitant]
     Route: 048
     Dates: start: 19970101
  7. CACIT D3 [Concomitant]
     Indication: OSTEOPOROSIS
     Route: 048
     Dates: start: 19970101
  8. VIT B12 [Concomitant]
     Route: 065

REACTIONS (5)
  - ABDOMINAL PAIN UPPER [None]
  - C-REACTIVE PROTEIN INCREASED [None]
  - LEUKOCYTOSIS [None]
  - NEUTROPHILIA [None]
  - VOMITING [None]
